FAERS Safety Report 22302973 (Version 2)
Quarter: 2024Q3

REPORT INFORMATION
  Report Type: Report from Study
  Country: US (occurrence: US)
  Receive Date: 20230510
  Receipt Date: 20240829
  Transmission Date: 20241017
  Serious: Yes (Other)
  Sender: TAKEDA
  Company Number: US-TAKEDA-US201912436

PATIENT
  Sex: Female

DRUGS (2)
  1. HUMAN IMMUNOGLOBULIN G [Suspect]
     Active Substance: HUMAN IMMUNOGLOBULIN G
     Indication: Immunodeficiency common variable
     Dosage: 35 GRAM, MONTHLY
     Route: 042
  2. HUMAN IMMUNOGLOBULIN G [Suspect]
     Active Substance: HUMAN IMMUNOGLOBULIN G
     Indication: Primary immunodeficiency syndrome
     Dosage: 35 GRAM, Q4WEEKS
     Route: 042

REACTIONS (12)
  - Neoplasm malignant [Unknown]
  - Acute febrile neutrophilic dermatosis [Unknown]
  - Poor venous access [Unknown]
  - Somnolence [Unknown]
  - Illness [Unknown]
  - Infusion site extravasation [Unknown]
  - Headache [Unknown]
  - Fatigue [Unknown]
  - Product use issue [Unknown]
  - Malaise [Unknown]
  - Intervertebral disc degeneration [Unknown]
  - Abdominal pain upper [Unknown]
